FAERS Safety Report 8314291-8 (Version None)
Quarter: 2012Q2

REPORT INFORMATION
  Report Type: 
  Country: None (occurrence: None)
  Receive Date: 20120424
  Receipt Date: 20120411
  Transmission Date: 20120825
  Serious: Yes (Hospitalization)
  Sender: FDA-Public Use
  Company Number: 2012SP021142

PATIENT
  Age: 44 Year
  Sex: Female
  Weight: 53.95 kg

DRUGS (4)
  1. RIBAVIRIN [Suspect]
     Indication: HEPATITIS C
     Dosage: 1000 MG;QW;PO
     Route: 048
     Dates: start: 20120125, end: 20120331
  2. GS-9451 (INVESTIGATIONAL DRUG) [Suspect]
     Indication: HEPATITIS C
     Dosage: 200 MG;QD;PO
     Route: 048
     Dates: start: 20120125, end: 20120331
  3. GS-5885 (INVESTIGATIONAL DRUG) [Suspect]
     Indication: HEPATITIS C
     Dosage: 30 MG;QD;PO
     Route: 048
     Dates: start: 20120125, end: 20120331
  4. PEGINTERFERON ALFA-2A [Suspect]
     Indication: HEPATITIS C
     Dosage: 180 MCG;QW;SC
     Route: 058
     Dates: start: 20120125, end: 20120328

REACTIONS (1)
  - MALAISE [None]
